FAERS Safety Report 26179398 (Version 1)
Quarter: 2025Q4

REPORT INFORMATION
  Report Type: Spontaneous
  Country: US (occurrence: None)
  Receive Date: 20251218
  Receipt Date: 20251218
  Transmission Date: 20260118
  Serious: Yes (Death)
  Sender: FDA-CTU
  Company Number: None

PATIENT
  Sex: Male

DRUGS (11)
  1. REVLIMID [Suspect]
     Active Substance: LENALIDOMIDE
     Indication: Plasma cell myeloma
     Dosage: OTHER FREQUENCY : DAILY OR21 DAYS ON 7 OFF ;
     Route: 048
     Dates: start: 20230626
  2. AZELASTINE [Concomitant]
     Active Substance: AZELASTINE
  3. ACYCLOVIR [Concomitant]
     Active Substance: ACYCLOVIR
  4. ZETIA [Concomitant]
     Active Substance: EZETIMIBE
  5. COENZYME Q10 [Concomitant]
     Active Substance: DIETARY SUPPLEMENT\UBIDECARENONE
  6. IMODIUM A-D [Concomitant]
     Active Substance: LOPERAMIDE HYDROCHLORIDE
  7. METAMUCIL ORG ORANGE [Concomitant]
  8. MULTIVITAMIN ADULTS [Concomitant]
  9. VELCADE [Concomitant]
     Active Substance: BORTEZOMIB
  10. PANTOPRAZOLE [Concomitant]
     Active Substance: PANTOPRAZOLE
  11. ACETAMINOPHEN [Concomitant]
     Active Substance: ACETAMINOPHEN

REACTIONS (1)
  - Death [None]
